FAERS Safety Report 25423298 (Version 1)
Quarter: 2025Q2

REPORT INFORMATION
  Report Type: Spontaneous
  Country: US (occurrence: None)
  Receive Date: 20250611
  Receipt Date: 20250611
  Transmission Date: 20250717
  Serious: Yes (unspecified)
  Sender: FDA-CTU
  Company Number: None

PATIENT
  Age: 76 Year
  Sex: Male
  Weight: 103 kg

DRUGS (4)
  1. ACETYLCYSTEINE [Suspect]
     Active Substance: ACETYLCYSTEINE
     Indication: Overdose
     Route: 042
     Dates: start: 20240714, end: 20240714
  2. ACETYLCYSTEINE [Suspect]
     Active Substance: ACETYLCYSTEINE
     Route: 042
     Dates: start: 20240714, end: 20240714
  3. TYLENOL [Suspect]
     Active Substance: ACETAMINOPHEN
  4. VICODIN [Suspect]
     Active Substance: ACETAMINOPHEN\HYDROCODONE BITARTRATE

REACTIONS (3)
  - Chest discomfort [None]
  - Flushing [None]
  - Pruritus [None]

NARRATIVE: CASE EVENT DATE: 20240714
